FAERS Safety Report 9018524 (Version 1)
Quarter: 2013Q1

REPORT INFORMATION
  Report Type: Spontaneous
  Country: US (occurrence: US)
  Receive Date: 20130118
  Receipt Date: 20130118
  Transmission Date: 20140127
  Serious: No
  Sender: FDA-Public Use
  Company Number: US-PFIZER INC-2013020654

PATIENT
  Age: 58 Year
  Sex: Female

DRUGS (4)
  1. CODEINE PHOSPHATE [Suspect]
     Dosage: UNK
  2. COMPAZINE [Suspect]
     Dosage: UNK
  3. ASA [Suspect]
     Dosage: UNK
  4. LIDOCAINE HCL [Suspect]
     Dosage: UNK
     Route: 061

REACTIONS (1)
  - Drug hypersensitivity [Unknown]
